FAERS Safety Report 6223195-6 (Version None)
Quarter: 2009Q2

REPORT INFORMATION
  Report Type: 
  Country: None (occurrence: None)
  Receive Date: 20090609
  Receipt Date: 20090527
  Transmission Date: 20091009
  Serious: Yes (Hospitalization)
  Sender: FDA-Public Use
  Company Number: GR-WYE-H09576809

PATIENT
  Age: 17 Year

DRUGS (4)
  1. TYGACIL [Suspect]
     Indication: PNEUMONIA
     Dosage: 100 MG LOADING DOSE FOLLOWED BY 50 MG EVERY 12 HOURS INTRAVENOUS
     Route: 042
  2. TYGACIL [Suspect]
     Indication: PNEUMONIA KLEBSIELLA
     Dosage: 100 MG LOADING DOSE FOLLOWED BY 50 MG EVERY 12 HOURS INTRAVENOUS
     Route: 042
  3. COLISTIN (COLISTIN) [Concomitant]
  4. MEROPENEM (MEROPENEM) [Concomitant]

REACTIONS (4)
  - BLOOD FIBRINOGEN DECREASED [None]
  - EPISTAXIS [None]
  - TRANSAMINASES INCREASED [None]
  - TREATMENT FAILURE [None]
